FAERS Safety Report 5887531-2 (Version None)
Quarter: 2008Q3

REPORT INFORMATION
  Report Type: 
  Country: None (occurrence: None)
  Receive Date: 20080918
  Receipt Date: 20080910
  Transmission Date: 20090109
  Serious: Yes (Disabling)
  Sender: FDA-Public Use
  Company Number: PHHY2008IT07534

PATIENT
  Age: 62 Year
  Sex: Female

DRUGS (4)
  1. ZOMETA [Suspect]
     Indication: BREAST CANCER METASTATIC
     Dosage: 4 MG, QMO
     Route: 042
     Dates: start: 20020101, end: 20050331
  2. TAMOXIFEN CITRATE [Concomitant]
     Route: 048
  3. ARIMIDEX [Concomitant]
     Route: 048
  4. FASLODEX [Concomitant]
     Route: 030

REACTIONS (4)
  - BONE DISORDER [None]
  - DISABILITY [None]
  - OROANTRAL FISTULA [None]
  - OSTEONECROSIS [None]
